FAERS Safety Report 21083585 (Version 1)
Quarter: 2022Q3

REPORT INFORMATION
  Report Type: Spontaneous
  Country: US (occurrence: None)
  Receive Date: 20220714
  Receipt Date: 20220714
  Transmission Date: 20221027
  Serious: Yes (Death)
  Sender: FDA-Public Use
  Company Number: None

PATIENT
  Age: 61 Year
  Sex: Female
  Weight: 53.52 kg

DRUGS (15)
  1. HALAVEN [Suspect]
     Active Substance: ERIBULIN MESYLATE
     Indication: Breast cancer female
     Dosage: OTHER FREQUENCY :DAY 1 AND 8 IV?
     Route: 042
  2. NEULASTA [Suspect]
     Active Substance: PEGFILGRASTIM
     Indication: Breast cancer female
     Dosage: FREQUENCY : AS DIRECTED;?
     Route: 058
  3. CALCIUM CITRATE + D3 [Concomitant]
  4. CANNABIDOLOL [Concomitant]
  5. GINGER [Concomitant]
     Active Substance: GINGER
  6. HUMALOG MIX75/25 [Concomitant]
     Active Substance: INSULIN LISPRO
  7. IBUPROFEN [Concomitant]
     Active Substance: IBUPROFEN
  8. LIPITOR [Concomitant]
     Active Substance: ATORVASTATIN CALCIUM
  9. LORAZEPAM [Concomitant]
     Active Substance: LORAZEPAM
  10. MARINOL [Concomitant]
     Active Substance: DRONABINOL
  11. MEGESTROL ACETATE [Concomitant]
     Active Substance: MEGESTROL ACETATE
  12. MORPHINE SULFATE [Concomitant]
     Active Substance: MORPHINE SULFATE
  13. PROCHLORPERAZINE [Concomitant]
     Active Substance: PROCHLORPERAZINE
  14. TRAMADOL [Concomitant]
     Active Substance: TRAMADOL
  15. VITAMIN C [Concomitant]
     Active Substance: ASCORBIC ACID

REACTIONS (1)
  - Death [None]
